FAERS Safety Report 18500798 (Version 1)
Quarter: 2020Q4

REPORT INFORMATION
  Report Type: Spontaneous
  Country: IN (occurrence: IN)
  Receive Date: 20201113
  Receipt Date: 20201113
  Transmission Date: 20210114
  Serious: Yes (Hospitalization, Other)
  Sender: FDA-Public Use
  Company Number: IN-ASTELLAS-2020US040044

PATIENT
  Age: 43 Year
  Sex: Male

DRUGS (6)
  1. HYDROCORTISONE. [Suspect]
     Active Substance: HYDROCORTISONE
     Indication: LIVER TRANSPLANT
     Route: 042
     Dates: start: 2018
  2. TACROLIMUS. [Suspect]
     Active Substance: TACROLIMUS
     Dosage: UNK UNK, UNKNOWN FREQ.
     Route: 048
     Dates: start: 2018, end: 2018
  3. TACROLIMUS. [Suspect]
     Active Substance: TACROLIMUS
     Indication: LIVER TRANSPLANT
     Dosage: UNK, UNKNOWN FREQ.  (GRADUALLY INCREASED TO MAINTAIN TROUGH LEVEL BETWEEN 7 AND 10)
     Route: 048
     Dates: start: 2018, end: 2018
  4. TACROLIMUS. [Suspect]
     Active Substance: TACROLIMUS
     Dosage: UNK UNK, UNKNOWN FREQ.
     Route: 048
     Dates: start: 2018
  5. PREDNISOLONE. [Suspect]
     Active Substance: PREDNISOLONE
     Indication: LIVER TRANSPLANT
     Route: 065
     Dates: start: 2018
  6. MYCOPHENOLATE MOFETIL. [Suspect]
     Active Substance: MYCOPHENOLATE MOFETIL
     Indication: LIVER TRANSPLANT
     Dosage: UNK UNK, UNKNOWN FREQ. (STARTED ON POSTOPERATIVE DAY 5)
     Route: 065
     Dates: start: 2018

REACTIONS (2)
  - Acute kidney injury [Unknown]
  - Splenic peliosis [Recovered/Resolved]

NARRATIVE: CASE EVENT DATE: 2018
